FAERS Safety Report 9223854 (Version 2)
Quarter: 2013Q2

REPORT INFORMATION
  Report Type: Spontaneous
  Country: US (occurrence: US)
  Receive Date: 20130411
  Receipt Date: 20130425
  Transmission Date: 20140414
  Serious: Yes (Other)
  Sender: FDA-Public Use
  Company Number: US-AMGEN-USASP2013024516

PATIENT
  Age: 62 Year
  Sex: Female
  Weight: 81.63 kg

DRUGS (9)
  1. ENBREL [Suspect]
     Indication: PSORIATIC ARTHROPATHY
     Dosage: 25 MG, 2 TIMES/WK
     Route: 058
  2. AXID                               /00867001/ [Concomitant]
     Dosage: 300 MG, UNK
  3. XANAX [Concomitant]
     Dosage: 0.5 MG, UNK
  4. ZOLOFT [Concomitant]
     Dosage: 25 MG, UNK
  5. AMLODIPINE [Concomitant]
     Dosage: 10 MG, UNK
  6. TRAMADOL HCL [Concomitant]
     Dosage: 50 MG, UNK
  7. METFORMIN [Concomitant]
     Dosage: 500 MG, UNK
  8. GLIMEPIRIDE [Concomitant]
     Dosage: 1 MG, UNK
  9. ASA [Concomitant]
     Dosage: 81 MG, UNK

REACTIONS (2)
  - Gallbladder disorder [Unknown]
  - Hepatic cirrhosis [Unknown]
